FAERS Safety Report 6488165-1 (Version None)
Quarter: 2009Q4

REPORT INFORMATION
  Report Type: 
  Country: None (occurrence: None)
  Receive Date: 20091210
  Receipt Date: 20091203
  Transmission Date: 20100525
  Serious: Yes (Disabling)
  Sender: FDA-Public Use
  Company Number: A0834182A

PATIENT
  Age: 53 Year
  Sex: Male

DRUGS (2)
  1. AVODART [Suspect]
     Dosage: 1CAP PER DAY
     Route: 048
     Dates: end: 20091202
  2. THYROID MEDICATION [Concomitant]

REACTIONS (4)
  - HEPATIC FUNCTION ABNORMAL [None]
  - PORPHYRIA NON-ACUTE [None]
  - SKIN BURNING SENSATION [None]
  - STAPHYLOCOCCAL INFECTION [None]
